FAERS Safety Report 10475282 (Version 1)
Quarter: 2014Q3

REPORT INFORMATION
  Report Type: Spontaneous
  Country: US (occurrence: None)
  Receive Date: 20140924
  Receipt Date: 20140924
  Transmission Date: 20150326
  Serious: Yes (Disabling)
  Sender: FDA-Public Use
  Company Number: None

PATIENT
  Age: 60 Year
  Sex: Female
  Weight: 63.5 kg

DRUGS (1)
  1. IBANDRONATE [Suspect]
     Active Substance: IBANDRONATE SODIUM
     Indication: OSTEOPOROSIS
     Dosage: 1 MONTHLY TAKEN BY MOUTH
     Route: 048
     Dates: start: 20110301, end: 20140808

REACTIONS (4)
  - Pain in extremity [None]
  - No therapeutic response [None]
  - Insomnia [None]
  - Frustration [None]

NARRATIVE: CASE EVENT DATE: 20131110
